FAERS Safety Report 21707630 (Version 1)
Quarter: 2022Q4

REPORT INFORMATION
  Report Type: Spontaneous
  Country: FR (occurrence: FR)
  Receive Date: 20221209
  Receipt Date: 20221209
  Transmission Date: 20230113
  Serious: Yes (Other)
  Sender: FDA-Public Use
  Company Number: FR-JNJFOC-20221157539

PATIENT
  Age: 73 Year
  Sex: Male

DRUGS (3)
  1. DEXAMETHASONE [Suspect]
     Active Substance: DEXAMETHASONE
     Indication: Plasma cell myeloma
     Dosage: 2 DOSE(S)/WEEK, 3 WEEK(S)/CYCLE
     Route: 065
     Dates: end: 20210624
  2. DARZALEX [Suspect]
     Active Substance: DARATUMUMAB
     Indication: Plasma cell myeloma
     Dosage: 1 DOSE(S)/WEEK, 4 WEEK(S)/CYCLE
     Route: 065
     Dates: end: 20210624
  3. VELCADE [Suspect]
     Active Substance: BORTEZOMIB
     Indication: Plasma cell myeloma
     Dosage: 2 DOSE(S)/WEEK, 3 WEEK(S)/CYCLE
     Route: 065
     Dates: end: 20210624

REACTIONS (3)
  - Thrombocytopenia [Unknown]
  - Asthenia [Unknown]
  - Abdominal pain [Unknown]
